FAERS Safety Report 7564742-1 (Version None)
Quarter: 2011Q2

REPORT INFORMATION
  Report Type: 
  Country: None (occurrence: None)
  Receive Date: 20110622
  Receipt Date: 20101012
  Transmission Date: 20111010
  Serious: Yes (Death)
  Sender: FDA-Public Use
  Company Number: US-MYLANLABS-2010S1018852

PATIENT
  Age: 58 Year
  Sex: Male

DRUGS (5)
  1. CLOZAPINE [Suspect]
  2. PROPRANOLOL [Concomitant]
  3. LITHIUM [Concomitant]
  4. CLOZAPINE [Suspect]
  5. CLOZAPINE [Suspect]

REACTIONS (1)
  - DEATH [None]
